FAERS Safety Report 16203028 (Version 1)
Quarter: 2019Q2

REPORT INFORMATION
  Report Type: Report from Study
  Country: US (occurrence: US)
  Receive Date: 20190416
  Receipt Date: 20190416
  Transmission Date: 20190711
  Serious: Yes (Hospitalization)
  Sender: FDA-Public Use
  Company Number: US-PFIZER INC-2019152243

PATIENT
  Age: 65 Year
  Sex: Female
  Weight: 70.5 kg

DRUGS (27)
  1. 5-FU [Suspect]
     Active Substance: FLUOROURACIL
     Indication: PANCREATIC CARCINOMA METASTATIC
     Dosage: 720 MG, DAY 1 OF 14 DAY CYCLICAL
     Route: 040
     Dates: start: 20180718, end: 20181221
  2. OXYCODONE [Concomitant]
     Active Substance: OXYCODONE
     Indication: BREAKTHROUGH PAIN
     Dosage: UNK
     Dates: start: 20180312
  3. LOPERAMIDE [Concomitant]
     Active Substance: LOPERAMIDE
     Indication: DIARRHOEA
     Dosage: UNK
     Dates: start: 20181113
  4. BUTALBITAL, ACETAMINOPHEN, AND CAFFEINE [Concomitant]
     Active Substance: ACETAMINOPHEN\BUTALBITAL\CAFFEINE
     Indication: MIGRAINE
     Dosage: UNK
  5. ZOLPIDEM [Concomitant]
     Active Substance: ZOLPIDEM\ZOLPIDEM TARTRATE
     Indication: INSOMNIA
     Dosage: UNK
     Dates: start: 20181205
  6. ACETAMINOPHEN. [Concomitant]
     Active Substance: ACETAMINOPHEN
     Indication: ABDOMINAL PAIN
     Dosage: UNK
     Dates: start: 20190113
  7. DEXAMETHASONE. [Concomitant]
     Active Substance: DEXAMETHASONE
     Indication: ABDOMINAL PAIN
     Dosage: UNK
     Dates: start: 20190114
  8. PANTOPRAZOLE SODIUM. [Concomitant]
     Active Substance: PANTOPRAZOLE SODIUM
     Indication: PANCREATIC CARCINOMA
     Dosage: UNK
     Dates: start: 20180312
  9. POLYETHYLENE GLYCOL 3350. [Concomitant]
     Active Substance: POLYETHYLENE GLYCOL 3350
     Indication: CONSTIPATION
     Dosage: UNK
     Dates: start: 20180312
  10. ENOXAPARIN [Concomitant]
     Active Substance: ENOXAPARIN
     Indication: PROPHYLAXIS
     Dosage: UNK
     Dates: start: 20190113
  11. DOCUSATE SODIUM. [Concomitant]
     Active Substance: DOCUSATE SODIUM
     Indication: CONSTIPATION
     Dosage: UNK
     Dates: start: 20180711
  12. REMERON [Concomitant]
     Active Substance: MIRTAZAPINE
     Indication: NAUSEA
     Dosage: UNK
     Dates: start: 20180615
  13. OXALIPLATIN. [Suspect]
     Active Substance: OXALIPLATIN
     Indication: PANCREATIC CARCINOMA METASTATIC
     Dosage: 150 MG, DAY 1 OF 14 DAY CYCLICAL
     Route: 042
     Dates: start: 20180718, end: 20181219
  14. PROCHLORPERAZINE. [Concomitant]
     Active Substance: PROCHLORPERAZINE
     Indication: NAUSEA
     Dosage: UNK
     Dates: start: 20180926
  15. ATROPINE. [Concomitant]
     Active Substance: ATROPINE
     Indication: DIARRHOEA
     Dosage: UNK
     Dates: start: 20181115
  16. DRONABINOL. [Concomitant]
     Active Substance: DRONABINOL
     Indication: DECREASED APPETITE
     Dosage: UNK
     Dates: start: 20180711
  17. LORAZEPAM. [Concomitant]
     Active Substance: LORAZEPAM
     Indication: ANXIETY
     Dosage: UNK
     Dates: start: 20180711
  18. ONDANSETRON [Concomitant]
     Active Substance: ONDANSETRON
     Indication: NAUSEA
     Dosage: UNK
     Dates: start: 20180312
  19. BLINDED THERAPY [Suspect]
     Active Substance: INVESTIGATIONAL PRODUCT
     Indication: PANCREATIC CARCINOMA METASTATIC
     Dosage: 0.4 MG, ON DAYS 1-5 AND THEN DAYS 8-12 CYCLICAL
     Route: 058
     Dates: start: 20180718, end: 20190224
  20. BLINDED THERAPY [Suspect]
     Active Substance: INVESTIGATIONAL PRODUCT
     Dosage: 0.4 MG, ON DAYS 1-5 AND THEN DAYS 8-12 CYCLICAL
     Route: 058
     Dates: start: 20190309, end: 20190325
  21. MS CONTIN [Concomitant]
     Active Substance: MORPHINE SULFATE
     Indication: ABDOMINAL PAIN
     Dosage: UNK
     Dates: start: 20190115, end: 20190306
  22. VENLAFAXINE [Concomitant]
     Active Substance: VENLAFAXINE HYDROCHLORIDE
     Indication: DEPRESSION
     Dosage: UNK
     Dates: start: 20181121
  23. DIPHENOXYLATE HCL [Concomitant]
     Indication: DIARRHOEA
     Dosage: UNK
     Dates: start: 20181115
  24. MORPHINE [Concomitant]
     Active Substance: MORPHINE
     Indication: ABDOMINAL PAIN
     Dosage: UNK
     Dates: start: 20190115
  25. 5-FU [Suspect]
     Active Substance: FLUOROURACIL
     Dosage: 4300 MG, DAY 1 OF 14 DAY CYCLICAL (PUMP)
     Route: 042
     Dates: start: 20180718, end: 20181221
  26. LEUCOVORIN. [Suspect]
     Active Substance: LEUCOVORIN
     Indication: PANCREATIC CARCINOMA METASTATIC
     Dosage: 720 MG, DAY 1 OF 14 DAY CYCLICAL
     Route: 042
     Dates: start: 20180718, end: 20181219
  27. CREON [Concomitant]
     Active Substance: PANCRELIPASE AMYLASE\PANCRELIPASE LIPASE\PANCRELIPASE PROTEASE
     Indication: PANCREATIC CARCINOMA
     Dosage: UNK
     Dates: start: 20180711

REACTIONS (4)
  - Respiratory acidosis [Recovering/Resolving]
  - Abdominal pain [Recovering/Resolving]
  - Lung infection [Recovering/Resolving]
  - Lung infection [Recovered/Resolved]

NARRATIVE: CASE EVENT DATE: 20190306
